FAERS Safety Report 10897769 (Version 1)
Quarter: 2015Q1

REPORT INFORMATION
  Report Type: Spontaneous
  Country: US (occurrence: None)
  Receive Date: 20150302
  Receipt Date: 20150302
  Transmission Date: 20150721
  Serious: Yes (Death)
  Sender: FDA-Public Use
  Company Number: None

PATIENT
  Age: 77 Year
  Sex: Male
  Weight: 97.9 kg

DRUGS (9)
  1. SODIUM CHLORIDE. [Concomitant]
     Active Substance: SODIUM CHLORIDE
  2. TAMIFLU [Suspect]
     Active Substance: OSELTAMIVIR PHOSPHATE
     Indication: INFLUENZA A VIRUS TEST POSITIVE
     Dosage: 1 CAPSULE, BID, ORAL
     Route: 048
     Dates: start: 20141228, end: 20141229
  3. LISINOPRIL. [Concomitant]
     Active Substance: LISINOPRIL
  4. HYDALAZINE [Concomitant]
  5. NADOLOL. [Concomitant]
     Active Substance: NADOLOL
  6. ASPIRIN. [Concomitant]
     Active Substance: ASPIRIN
  7. VENLAFAXINE [Concomitant]
     Active Substance: VENLAFAXINE HYDROCHLORIDE
  8. LOVASTATIN. [Concomitant]
     Active Substance: LOVASTATIN
  9. ALPRAZOLAM. [Concomitant]
     Active Substance: ALPRAZOLAM

REACTIONS (13)
  - Subdural haematoma [None]
  - Haemorrhage intracranial [None]
  - Anxiety [None]
  - Haematemesis [None]
  - Respiratory distress [None]
  - Laceration [None]
  - Loss of consciousness [None]
  - Head injury [None]
  - Aggression [None]
  - Fall [None]
  - Cerebral infarction [None]
  - Restlessness [None]
  - Confusional state [None]

NARRATIVE: CASE EVENT DATE: 20141230
